FAERS Safety Report 20634581 (Version 1)
Quarter: 2022Q1

REPORT INFORMATION
  Report Type: Spontaneous
  Country: CA (occurrence: CA)
  Receive Date: 20220325
  Receipt Date: 20220325
  Transmission Date: 20220424
  Serious: Yes (Other)
  Sender: FDA-Public Use
  Company Number: CA-ROCHE-3049044

PATIENT
  Age: 48 Year
  Sex: Female

DRUGS (44)
  1. CLONAZEPAM [Interacting]
     Active Substance: CLONAZEPAM
     Indication: Anxiety
     Dosage: UNK
     Route: 065
  2. DIAZEPAM [Interacting]
     Active Substance: DIAZEPAM
     Indication: Product used for unknown indication
     Dosage: UNK
     Route: 065
  3. AUBAGIO [Interacting]
     Active Substance: TERIFLUNOMIDE
     Indication: Relapsing-remitting multiple sclerosis
     Dosage: 14 MG, DAILY
     Route: 048
  4. AVAPRO [Concomitant]
     Active Substance: IRBESARTAN
     Indication: Migraine
     Dosage: UNK
     Route: 065
  5. AVAPRO [Concomitant]
     Active Substance: IRBESARTAN
     Indication: Pain in extremity
     Dosage: UNK
     Route: 065
  6. AVAPRO [Concomitant]
     Active Substance: IRBESARTAN
     Indication: Tremor
     Dosage: UNK
     Route: 065
  7. AVAPRO [Concomitant]
     Active Substance: IRBESARTAN
     Indication: Depression
     Dosage: UNK
     Route: 065
  8. AVAPRO [Concomitant]
     Active Substance: IRBESARTAN
     Indication: Anxiety
     Dosage: UNK
     Route: 065
  9. AVAPRO [Concomitant]
     Active Substance: IRBESARTAN
     Indication: Migraine
     Dosage: UNK
     Route: 065
  10. AVAPRO [Concomitant]
     Active Substance: IRBESARTAN
     Indication: Pain in extremity
     Dosage: UNK
     Route: 065
  11. AVAPRO [Concomitant]
     Active Substance: IRBESARTAN
     Indication: Tremor
     Dosage: UNK
     Route: 065
  12. AVAPRO [Concomitant]
     Active Substance: IRBESARTAN
     Indication: Depression
     Dosage: UNK
     Route: 065
  13. AVAPRO [Concomitant]
     Active Substance: IRBESARTAN
     Indication: Anxiety
     Dosage: UNK
     Route: 065
  14. AVAPRO [Concomitant]
     Active Substance: IRBESARTAN
     Indication: Migraine
     Dosage: UNK
     Route: 065
  15. AVAPRO [Concomitant]
     Active Substance: IRBESARTAN
     Indication: Pain in extremity
     Dosage: UNK
     Route: 065
  16. AVAPRO [Concomitant]
     Active Substance: IRBESARTAN
     Indication: Tremor
     Dosage: UNK
     Route: 065
  17. AVAPRO [Concomitant]
     Active Substance: IRBESARTAN
     Indication: Depression
     Dosage: UNK
     Route: 065
  18. AVAPRO [Concomitant]
     Active Substance: IRBESARTAN
     Indication: Anxiety
     Dosage: UNK
     Route: 065
  19. AVAPRO [Concomitant]
     Active Substance: IRBESARTAN
     Indication: Migraine
     Dosage: 300 MG, DAILY
     Route: 065
  20. AVAPRO [Concomitant]
     Active Substance: IRBESARTAN
     Indication: Pain in extremity
     Dosage: 300 MG, DAILY
     Route: 065
  21. AVAPRO [Concomitant]
     Active Substance: IRBESARTAN
     Indication: Tremor
     Dosage: 300 MG, DAILY
     Route: 065
  22. AVAPRO [Concomitant]
     Active Substance: IRBESARTAN
     Indication: Depression
     Dosage: 300 MG, DAILY
     Route: 065
  23. AVAPRO [Concomitant]
     Active Substance: IRBESARTAN
     Indication: Anxiety
     Dosage: 300 MG, DAILY
     Route: 065
  24. AVAPRO [Concomitant]
     Active Substance: IRBESARTAN
     Indication: Migraine
     Dosage: UNK
     Route: 065
  25. AVAPRO [Concomitant]
     Active Substance: IRBESARTAN
     Indication: Pain in extremity
     Dosage: UNK
     Route: 065
  26. AVAPRO [Concomitant]
     Active Substance: IRBESARTAN
     Indication: Tremor
     Dosage: UNK
     Route: 065
  27. AVAPRO [Concomitant]
     Active Substance: IRBESARTAN
     Indication: Depression
     Dosage: UNK
     Route: 065
  28. AVAPRO [Concomitant]
     Active Substance: IRBESARTAN
     Indication: Anxiety
     Dosage: UNK
     Route: 065
  29. AVAPRO [Concomitant]
     Active Substance: IRBESARTAN
     Indication: Migraine
     Dosage: UNK
     Route: 065
  30. AVAPRO [Concomitant]
     Active Substance: IRBESARTAN
     Indication: Pain in extremity
     Dosage: UNK
     Route: 065
  31. AVAPRO [Concomitant]
     Active Substance: IRBESARTAN
     Indication: Tremor
     Dosage: UNK
     Route: 065
  32. AVAPRO [Concomitant]
     Active Substance: IRBESARTAN
     Indication: Depression
     Dosage: UNK
     Route: 065
  33. AVAPRO [Concomitant]
     Active Substance: IRBESARTAN
     Indication: Anxiety
     Dosage: UNK
     Route: 065
  34. BACLOFEN [Concomitant]
     Active Substance: BACLOFEN
     Indication: Muscle spasms
     Dosage: UNK, BID
     Route: 048
  35. CANNABIDIOL [Concomitant]
     Active Substance: CANNABIDIOL
     Indication: Anxiety
     Dosage: UNK
     Route: 065
  36. CANNABIS SATIVA FLOWERING TOP [Concomitant]
     Active Substance: CANNABIS SATIVA FLOWERING TOP
     Indication: Pain in extremity
     Dosage: UNK
     Route: 048
  37. CANNABIS SATIVA FLOWERING TOP [Concomitant]
     Active Substance: CANNABIS SATIVA FLOWERING TOP
     Indication: Tremor
     Dosage: UNK
     Route: 048
  38. CANNABIS SATIVA FLOWERING TOP [Concomitant]
     Active Substance: CANNABIS SATIVA FLOWERING TOP
     Indication: Pain in extremity
     Dosage: UNK
     Route: 065
  39. CANNABIS SATIVA FLOWERING TOP [Concomitant]
     Active Substance: CANNABIS SATIVA FLOWERING TOP
     Indication: Tremor
     Dosage: UNK
     Route: 065
  40. CYANOCOBALAMIN [Concomitant]
     Active Substance: CYANOCOBALAMIN
     Dosage: UNK
     Route: 065
  41. SERTRALINE HYDROCHLORIDE [Concomitant]
     Active Substance: SERTRALINE HYDROCHLORIDE
     Indication: Depression
     Dosage: 100 MG, DAILY
     Route: 048
  42. VITAMIN B1 [Concomitant]
     Active Substance: THIAMINE HYDROCHLORIDE
     Dosage: UNK
     Route: 065
  43. VITAMINS NOS [Concomitant]
     Active Substance: VITAMINS
     Dosage: UNK
     Route: 065
  44. VITAMIN D [Concomitant]
     Active Substance: VITAMIN D NOS
     Dosage: UNK
     Route: 065

REACTIONS (17)
  - COVID-19 [Not Recovered/Not Resolved]
  - Cough [Not Recovered/Not Resolved]
  - Dry mouth [Not Recovered/Not Resolved]
  - Eye pain [Not Recovered/Not Resolved]
  - Feeling abnormal [Not Recovered/Not Resolved]
  - Feeling hot [Not Recovered/Not Resolved]
  - Headache [Not Recovered/Not Resolved]
  - Hypertension [Not Recovered/Not Resolved]
  - Hysterectomy [Not Recovered/Not Resolved]
  - Myocardial infarction [Not Recovered/Not Resolved]
  - Pain in extremity [Not Recovered/Not Resolved]
  - Pyrexia [Not Recovered/Not Resolved]
  - Respiratory disorder [Not Recovered/Not Resolved]
  - Rhinorrhoea [Not Recovered/Not Resolved]
  - Thirst [Not Recovered/Not Resolved]
  - Tremor [Not Recovered/Not Resolved]
  - Drug interaction [Unknown]
